FAERS Safety Report 24424552 (Version 2)
Quarter: 2024Q4

REPORT INFORMATION
  Report Type: Spontaneous
  Country: US (occurrence: US)
  Receive Date: 20241010
  Receipt Date: 20241022
  Transmission Date: 20250115
  Serious: No
  Sender: INCYTE
  Company Number: US-INCYTE CORPORATION-2024IN010506

PATIENT

DRUGS (2)
  1. JAKAFI [Suspect]
     Active Substance: RUXOLITINIB
     Indication: Polycythaemia
     Dosage: 10 MILLIGRAM, BID
     Route: 048
     Dates: start: 20240928
  2. JAKAFI [Suspect]
     Active Substance: RUXOLITINIB
     Dosage: UNK
     Route: 048

REACTIONS (12)
  - Fatigue [Unknown]
  - Dysuria [Unknown]
  - Movement disorder [Unknown]
  - Pain [Unknown]
  - Decreased appetite [Unknown]
  - Insomnia [Unknown]
  - Urine output decreased [Unknown]
  - Malaise [Unknown]
  - Musculoskeletal stiffness [Unknown]
  - Back pain [Unknown]
  - Frustration tolerance decreased [Unknown]
  - Muscle spasms [Recovering/Resolving]
